FAERS Safety Report 7331252-6 (Version None)
Quarter: 2011Q1

REPORT INFORMATION
  Report Type: 
  Country: None (occurrence: None)
  Receive Date: 20110304
  Receipt Date: 20110301
  Transmission Date: 20110831
  Serious: Yes (Other)
  Sender: FDA-Public Use
  Company Number: US-PFIZER INC-2011012279

PATIENT
  Sex: Female
  Weight: 86.168 kg

DRUGS (4)
  1. CHANTIX [Suspect]
     Dosage: 1 MG, 2X/DAY
     Route: 048
     Dates: start: 20110101, end: 20110114
  2. AVALIDE [Concomitant]
     Indication: HYPERTENSION
     Dosage: 300/12.5 MG DAILY
     Route: 048
  3. JANUMET [Concomitant]
     Indication: DIABETES MELLITUS
     Dosage: 50/500 MG TWO TIMES A DAY
     Route: 048
  4. CHANTIX [Suspect]
     Indication: SMOKING CESSATION THERAPY
     Dosage: 0.5 MG, 1X/DAY
     Route: 048
     Dates: start: 20110104, end: 20110101

REACTIONS (3)
  - ABNORMAL DREAMS [None]
  - BLISTER [None]
  - PRURITUS GENERALISED [None]
